FAERS Safety Report 4514206-4 (Version None)
Quarter: 2004Q4

REPORT INFORMATION
  Report Type: 
  Country: None (occurrence: None)
  Receive Date: 20041124
  Receipt Date: 20041110
  Transmission Date: 20050328
  Serious: Yes (Hospitalization)
  Sender: FDA-Public Use
  Company Number: JP_041105138

PATIENT
  Age: 65 Year
  Sex: Male

DRUGS (4)
  1. VINCRISTINE SULFATE [Suspect]
     Indication: DIFFUSE LARGE B-CELL LYMPHOMA
  2. CYCLOPHOSPHAMIDE [Concomitant]
  3. DOXORUBICIN HYDROCHLORIDE [Concomitant]
  4. PREDNISOLONE [Concomitant]

REACTIONS (4)
  - COUGH [None]
  - FIBROSIS [None]
  - OESOPHAGEAL STENOSIS [None]
  - TRACHEO-OESOPHAGEAL FISTULA [None]
